APPROVED DRUG PRODUCT: GRANISOL
Active Ingredient: GRANISETRON HYDROCHLORIDE
Strength: EQ 2MG BASE/10ML
Dosage Form/Route: SOLUTION;ORAL
Application: A078334 | Product #001
Applicant: INTRA-SANA LABORATORIES LLC
Approved: Feb 28, 2008 | RLD: No | RS: No | Type: DISCN